FAERS Safety Report 9244969 (Version 1)
Quarter: 2013Q2

REPORT INFORMATION
  Report Type: Report from Study
  Country: FR (occurrence: FR)
  Receive Date: 20130422
  Receipt Date: 20130422
  Transmission Date: 20140414
  Serious: Yes (Death, Other)
  Sender: FDA-Public Use
  Company Number: FR-PFIZER INC-2012247485

PATIENT
  Age: 69 Year
  Sex: Male
  Weight: 70 kg

DRUGS (3)
  1. ATGAM [Suspect]
     Indication: BONE MARROW FAILURE
     Dosage: 2800 MG, 1X/DAY
     Dates: start: 20120321, end: 20120324
  2. DOLIPRANE [Concomitant]
     Dosage: 2 DF, 1X/DAY
     Route: 048
  3. POLARAMINE [Concomitant]
     Route: 042

REACTIONS (2)
  - Drug ineffective [Fatal]
  - Plasma cell myeloma [Fatal]
